FAERS Safety Report 18950307 (Version 1)
Quarter: 2021Q1

REPORT INFORMATION
  Report Type: Spontaneous
  Country: US (occurrence: US)
  Receive Date: 20210228
  Receipt Date: 20210228
  Transmission Date: 20210420
  Serious: No
  Sender: FDA-Public Use
  Company Number: US-ROCHE-2719483

PATIENT
  Age: 8 Year
  Sex: Male

DRUGS (1)
  1. XOLAIR [Suspect]
     Active Substance: OMALIZUMAB
     Indication: PRODUCT USED FOR UNKNOWN INDICATION
     Dosage: FOR 4 MONTHS + 4 DOSES
     Route: 065

REACTIONS (3)
  - Headache [Unknown]
  - Abdominal pain upper [Unknown]
  - Hypersensitivity [Unknown]
